FAERS Safety Report 7640092-X (Version None)
Quarter: 2011Q3

REPORT INFORMATION
  Report Type: 
  Country: None (occurrence: None)
  Receive Date: 20110727
  Receipt Date: 20110722
  Transmission Date: 20111222
  Serious: Yes (Hospitalization)
  Sender: FDA-Public Use
  Company Number: IT-BRISTOL-MYERS SQUIBB COMPANY-15920945

PATIENT
  Age: 50 Year
  Sex: Female

DRUGS (4)
  1. REYATAZ [Suspect]
     Indication: HIV INFECTION
     Dates: start: 20090521
  2. CITALOPRAM HYDROBROMIDE [Suspect]
     Dosage: INTERRUPTED ON 16JUN11
     Dates: start: 20110101
  3. NEBIVOLOL HCL [Suspect]
     Indication: HYPERTENSION
     Dosage: INTERRUPTED ON 16JUN11
     Dates: start: 20090217
  4. PRAZEPAM [Suspect]
     Dosage: INTERRUPTED ON 16JUN11
     Dates: start: 20110101

REACTIONS (1)
  - SICK SINUS SYNDROME [None]
